FAERS Safety Report 8829650 (Version 1)
Quarter: 2012Q4

REPORT INFORMATION
  Report Type: 
  Country: US (occurrence: US)
  Receive Date: 20121008
  Receipt Date: 20121008
  Transmission Date: 20130627
  Serious: Yes (Death, Hospitalization)
  Sender: FDA-Public Use
  Company Number: US-ROCHE-1130217

PATIENT
  Sex: Male

DRUGS (6)
  1. RITUXAN [Suspect]
     Indication: ANTITHROMBIN III DEFICIENCY
     Dosage: 4 Doses given
     Route: 042
     Dates: start: 20100326, end: 20110128
  2. RITUXAN [Suspect]
     Indication: ACTIVATED PROTEIN C RESISTANCE
     Dosage: 5 doses given
     Route: 065
     Dates: start: 2011
  3. RITUXAN [Suspect]
     Indication: ANTITHROMBIN III DEFICIENCY
  4. RITUXAN [Suspect]
     Indication: FACTOR V LEIDEN MUTATION
  5. RITUXAN [Suspect]
     Indication: OFF LABEL USE
  6. CYCLOPHOSPHAMIDE [Concomitant]
     Route: 042
     Dates: start: 201012

REACTIONS (2)
  - Death [Fatal]
  - Tumour lysis syndrome [Unknown]
